FAERS Safety Report 4340320-2 (Version None)
Quarter: 2004Q2

REPORT INFORMATION
  Report Type: 
  Country: None (occurrence: None)
  Receive Date: 20040412
  Receipt Date: 20040326
  Transmission Date: 20050107
  Serious: Yes (Life-Threatening, Hospitalization, Disabling)
  Sender: FDA-Public Use
  Company Number: DSA_24174-2004

PATIENT
  Age: 76 Year
  Sex: Male

DRUGS (4)
  1. ENALAPRIL MALEATE [Suspect]
     Indication: MYOCARDIAL INFARCTION
     Dosage: 2.5 MG PO
     Route: 048
     Dates: start: 20040204, end: 20040221
  2. ASPIRIN [Concomitant]
  3. SIMVASTATIN [Concomitant]
  4. SOTALOL HYDROCHLORIDE [Concomitant]

REACTIONS (3)
  - BILE DUCT OBSTRUCTION [None]
  - ILEUS [None]
  - PANCREATITIS ACUTE [None]
